FAERS Safety Report 6863139-7 (Version None)
Quarter: 2010Q3

REPORT INFORMATION
  Report Type: 
  Country: None (occurrence: None)
  Receive Date: 20100721
  Receipt Date: 20100714
  Transmission Date: 20110219
  Serious: Yes (Other)
  Sender: FDA-Public Use
  Company Number: US-GENENTECH-302033

PATIENT
  Sex: Male
  Weight: 81.633 kg

DRUGS (4)
  1. XOLAIR [Suspect]
     Indication: ASTHMA
     Dosage: 150 MG, 1/MONTH
     Route: 058
     Dates: start: 20100514
  2. ZYFLO CR [Concomitant]
     Indication: PRODUCT USED FOR UNKNOWN INDICATION
     Dosage: 600 MG, BID
  3. PREDNISONE [Concomitant]
     Indication: PRODUCT USED FOR UNKNOWN INDICATION
     Dosage: 5 MG, UNK
  4. XYZAL [Concomitant]
     Indication: PRODUCT USED FOR UNKNOWN INDICATION

REACTIONS (7)
  - CHEST DISCOMFORT [None]
  - DIZZINESS [None]
  - DYSPHONIA [None]
  - DYSPNOEA [None]
  - FATIGUE [None]
  - FLUSHING [None]
  - HYPOTENSION [None]
